FAERS Safety Report 5080284-X (Version None)
Quarter: 2006Q3

REPORT INFORMATION
  Report Type: 
  Country: None (occurrence: None)
  Receive Date: 20060815
  Receipt Date: 20060724
  Transmission Date: 20061208
  Serious: Yes (Hospitalization)
  Sender: FDA-Public Use
  Company Number: DE-AVENTIS-200612169DE

PATIENT
  Age: 69 Year
  Sex: Male
  Weight: 84 kg

DRUGS (4)
  1. AMARYL [Suspect]
     Indication: DIABETES MELLITUS NON-INSULIN-DEPENDENT
     Route: 048
     Dates: start: 20060401, end: 20060701
  2. STARLIX [Concomitant]
     Indication: DIABETES MELLITUS
     Dosage: DOSE: NOT REPORTED
  3. ANTIHYPERTENSIVES [Concomitant]
     Indication: HYPERTENSION
     Dosage: DOSE: NOT REPORTED
  4. UNACID [Concomitant]
     Indication: URINARY TRACT INFECTION

REACTIONS (9)
  - ASTHENIA [None]
  - CEREBRAL INFARCTION [None]
  - CEREBROVASCULAR INSUFFICIENCY [None]
  - CONDITION AGGRAVATED [None]
  - HEMIPARESIS [None]
  - MUSCULAR WEAKNESS [None]
  - NERVE INJURY [None]
  - REVERSIBLE ISCHAEMIC NEUROLOGICAL DEFICIT [None]
  - SPEECH DISORDER [None]
